FAERS Safety Report 23674926 (Version 2)
Quarter: 2024Q2

REPORT INFORMATION
  Report Type: Report from Study
  Country: FR (occurrence: FR)
  Receive Date: 20240326
  Receipt Date: 20240402
  Transmission Date: 20240716
  Serious: Yes (Other)
  Sender: FDA-Public Use
  Company Number: FR-AMX-007652

PATIENT
  Age: 54 Year
  Sex: Female
  Weight: 47 kg

DRUGS (6)
  1. RELYVRIO [Suspect]
     Active Substance: SODIUM PHENYLBUTYRATE\TAURURSODIOL
     Indication: Amyotrophic lateral sclerosis
     Dosage: 1 SACHET ONCE DAILY FOR FIRST 3 WEEKS, THEN 1 SACHET TWICE DAILY
     Route: 048
     Dates: start: 20240122, end: 20240315
  2. BACLOFEN [Concomitant]
     Active Substance: BACLOFEN
     Indication: Muscle spasms
     Dosage: IN THE EVENING
     Route: 065
     Dates: start: 20230601
  3. RILUZOLE [Concomitant]
     Active Substance: RILUZOLE
     Indication: Anti-soluble liver antigen/liver pancreas antibody
     Dosage: 1 X 2 PER DAY (1 IN THE MORNING AND 1 IN THE EVENING)
     Route: 065
     Dates: start: 20230504
  4. ESCITALOPRAM OXALATE [Concomitant]
     Active Substance: ESCITALOPRAM OXALATE
     Indication: Anxiety
     Dosage: IN THE MORNING
     Route: 065
     Dates: start: 20231101
  5. LORMETAZEPAM [Concomitant]
     Active Substance: LORMETAZEPAM
     Indication: Sleep disorder
     Dosage: IN THE EVENING
     Route: 065
     Dates: start: 20230601
  6. .ALPHA.-TOCOPHEROL ACETATE, D- [Concomitant]
     Active Substance: .ALPHA.-TOCOPHEROL ACETATE, D-
     Indication: Anti-soluble liver antigen/liver pancreas antibody
     Dosage: 1 X 2 PER DAY (1 IN THE MORNING AND 1 IN THE EVENING)
     Route: 065
     Dates: start: 20230504

REACTIONS (4)
  - Neutropenia [Recovered/Resolved]
  - Product use complaint [Unknown]
  - Feeling drunk [Recovered/Resolved]
  - Eructation [Recovered/Resolved]

NARRATIVE: CASE EVENT DATE: 20240122
